FAERS Safety Report 8908286 (Version 1)
Quarter: 2012Q4

REPORT INFORMATION
  Report Type: 
  Country: US (occurrence: US)
  Receive Date: 20121114
  Receipt Date: 20121114
  Transmission Date: 20130627
  Serious: Yes (Other)
  Sender: FDA-Public Use
  Company Number: CHPA2012US023342

PATIENT
  Age: 49 Year
  Sex: Female

DRUGS (1)
  1. PERDIEM [Suspect]
     Indication: CONSTIPATION
     Dosage: 1 or 2 pills, Unk
     Route: 048

REACTIONS (2)
  - Coeliac disease [Unknown]
  - Underdose [Unknown]
